FAERS Safety Report 5031342-7 (Version None)
Quarter: 2006Q2

REPORT INFORMATION
  Report Type: 
  Country: None (occurrence: None)
  Receive Date: 20060616
  Receipt Date: 20060602
  Transmission Date: 20061013
  Serious: Yes (Hospitalization)
  Sender: FDA-Public Use
  Company Number: 02100-JPN-06-0254

PATIENT
  Age: 68 Year
  Sex: Male

DRUGS (1)
  1. CILOSTAZOL [Suspect]
     Route: 048
     Dates: start: 20051121

REACTIONS (2)
  - GASTRIC ULCER HAEMORRHAGE [None]
  - HAEMOGLOBIN DECREASED [None]
